FAERS Safety Report 24729710 (Version 1)
Quarter: 2024Q4

REPORT INFORMATION
  Report Type: Spontaneous
  Country: GB (occurrence: GB)
  Receive Date: 20241213
  Receipt Date: 20241213
  Transmission Date: 20250115
  Serious: Yes (Other)
  Sender: BAXTER
  Company Number: None

PATIENT
  Age: 26 Year
  Sex: Male
  Weight: 51 kg

DRUGS (5)
  1. PROPOFOL [Suspect]
     Active Substance: PROPOFOL
     Indication: Adverse drug reaction
     Dosage: UNK
     Route: 065
     Dates: start: 20241014
  2. KETAMINE [Suspect]
     Active Substance: KETAMINE
     Indication: Adverse drug reaction
     Dosage: UNK
     Route: 065
     Dates: start: 20241014
  3. MIDAZOLAM [Suspect]
     Active Substance: MIDAZOLAM
     Indication: Adverse drug reaction
     Dosage: UNK
     Route: 065
     Dates: start: 20241014
  4. ALFENTANIL [Suspect]
     Active Substance: ALFENTANIL
     Indication: Adverse drug reaction
     Dosage: UNK
     Route: 065
     Dates: start: 20241014
  5. UNSPECIFIED INGREDIENT [Concomitant]
     Active Substance: UNSPECIFIED INGREDIENT
     Indication: Dental care
     Dosage: LOCAL ANAESTHETIC INJECTION INTO GUM
     Route: 065
     Dates: start: 20241014

REACTIONS (7)
  - Aggression [Recovered/Resolved]
  - Hostility [Recovered/Resolved]
  - Anger [Recovering/Resolving]
  - Logorrhoea [Recovered/Resolved]
  - Agitation [Recovered/Resolved]
  - Depression [Not Recovered/Not Resolved]
  - Insomnia [Recovering/Resolving]

NARRATIVE: CASE EVENT DATE: 20241015
